FAERS Safety Report 9951048 (Version 1)
Quarter: 2014Q1

REPORT INFORMATION
  Report Type: Spontaneous
  Country: US (occurrence: US)
  Receive Date: 20140304
  Receipt Date: 20140304
  Transmission Date: 20141002
  Serious: No
  Sender: FDA-Public Use
  Company Number: US-009507513-1402USA008166

PATIENT
  Age: 56 Year
  Sex: Female

DRUGS (6)
  1. PEGINTRON [Suspect]
     Indication: HEPATITIS C
     Dosage: STRENGTH: 120MCG/O.5CC, DOSE: 0.4CC
     Route: 058
     Dates: start: 20130131
  2. REBETOL [Suspect]
     Indication: HEPATITIS C
     Dosage: UNK UNK, BID, DOSE: 2 AM AND PM.
     Route: 048
     Dates: start: 20140131
  3. CYMBALTA [Concomitant]
     Dosage: 1 DF, QD
  4. LAMICTAL [Concomitant]
     Dosage: 1 DF, BID
  5. LYRICA [Concomitant]
     Dosage: 1 DF, BID
  6. METOPROLOL [Concomitant]
     Dosage: 1 DF, QD

REACTIONS (10)
  - Thirst [Unknown]
  - Irritability [Unknown]
  - Pruritus [Unknown]
  - Pyrexia [Unknown]
  - Injection site bruising [Unknown]
  - Nausea [Unknown]
  - Decreased appetite [Unknown]
  - Headache [Unknown]
  - Depression [Unknown]
  - Injection site erythema [Unknown]
